FAERS Safety Report 7944965-X (Version None)
Quarter: 2011Q4

REPORT INFORMATION
  Report Type: 
  Country: None (occurrence: None)
  Receive Date: 20111129
  Receipt Date: 20111125
  Transmission Date: 20120403
  Serious: Yes (Death)
  Sender: FDA-Public Use
  Company Number: PHHY2011MT103300

PATIENT
  Sex: Male

DRUGS (1)
  1. EXELON [Suspect]
     Indication: DEMENTIA ALZHEIMER'S TYPE
     Dosage: 9.5 MG (DAILY)
     Route: 062
     Dates: end: 20110201

REACTIONS (2)
  - PANCREATIC CARCINOMA [None]
  - NEOPLASM PROGRESSION [None]
